FAERS Safety Report 9803178 (Version 1)
Quarter: 2014Q1

REPORT INFORMATION
  Report Type: Spontaneous
  Country: US (occurrence: US)
  Receive Date: 20140108
  Receipt Date: 20140108
  Transmission Date: 20141002
  Serious: No
  Sender: FDA-Public Use
  Company Number: US-PFIZER INC-2014003656

PATIENT
  Age: 52 Year
  Sex: Female
  Weight: 77.1 kg

DRUGS (3)
  1. ADVIL [Suspect]
     Indication: PAIN
     Dosage: UNK
     Route: 048
  2. ADVIL [Suspect]
     Dosage: UNK, SINGLE (ONLY ONCE)
     Route: 048
     Dates: start: 20140101, end: 20140102
  3. NEURONTIN [Concomitant]
     Dosage: UNK

REACTIONS (5)
  - Cheilitis [Recovering/Resolving]
  - Lip swelling [Recovering/Resolving]
  - Paraesthesia oral [Recovering/Resolving]
  - Eye swelling [Not Recovered/Not Resolved]
  - Secretion discharge [Not Recovered/Not Resolved]
